FAERS Safety Report 15022403 (Version 3)
Quarter: 2018Q4

REPORT INFORMATION
  Report Type: Spontaneous
  Country: JP (occurrence: JP)
  Receive Date: 20180618
  Receipt Date: 20181120
  Transmission Date: 20190204
  Serious: Yes (Hospitalization)
  Sender: FDA-Public Use
  Company Number: PHJP2018JP012500

PATIENT
  Sex: Male

DRUGS (1)
  1. COSENTYX [Suspect]
     Active Substance: SECUKINUMAB
     Indication: PSORIASIS
     Dosage: 300 MG, PER ADMINISTRATION
     Route: 058

REACTIONS (3)
  - Metastases to lymph nodes [Unknown]
  - Oesophageal squamous cell carcinoma stage III [Unknown]
  - Malignant dysphagia [Unknown]

NARRATIVE: CASE EVENT DATE: 20171121
